FAERS Safety Report 8084580-3 (Version None)
Quarter: 2012Q1

REPORT INFORMATION
  Report Type: 
  Country: None (occurrence: None)
  Receive Date: 20120128
  Receipt Date: 20110324
  Transmission Date: 20120608
  Serious: No
  Sender: FDA-Public Use
  Company Number: US-ABBOTT-11P-163-0715123-00

PATIENT
  Sex: Female
  Weight: 53.118 kg

DRUGS (4)
  1. HUMIRA [Suspect]
     Indication: RHEUMATOID ARTHRITIS
     Dates: start: 20101101, end: 20110101
  2. UNKNOWN MEDICATION [Concomitant]
     Indication: BLOOD CHOLESTEROL INCREASED
  3. HUMIRA [Suspect]
     Dates: start: 20110201
  4. UNKNOWN MEDICATION [Concomitant]
     Indication: HYPERTENSION

REACTIONS (8)
  - PRURITUS [None]
  - INJECTION SITE HAEMATOMA [None]
  - LIP SWELLING [None]
  - ANXIETY [None]
  - EAR CONGESTION [None]
  - RASH [None]
  - VULVOVAGINAL PRURITUS [None]
  - CHEST PAIN [None]
